FAERS Safety Report 19094392 (Version 3)
Quarter: 2022Q1

REPORT INFORMATION
  Report Type: Report from Study
  Country: JP (occurrence: JP)
  Receive Date: 20210406
  Receipt Date: 20220119
  Transmission Date: 20220423
  Serious: Yes (Hospitalization, Other)
  Sender: FDA-Public Use
  Company Number: JP-TAKEDA-2021TJP011705

PATIENT
  Age: 73 Year
  Sex: Male

DRUGS (1)
  1. PROCRIN [Suspect]
     Active Substance: LEUPROLIDE ACETATE
     Indication: Bulbospinal muscular atrophy congenital
     Dosage: 11.25 MILLIGRAM, Q3MONTHS
     Route: 058

REACTIONS (5)
  - Contusion [Unknown]
  - Fall [Recovered/Resolved]
  - Extradural haematoma [Recovered/Resolved]
  - Motor dysfunction [Unknown]
  - Fall [Unknown]

NARRATIVE: CASE EVENT DATE: 20210301
